FAERS Safety Report 6787544-2 (Version None)
Quarter: 2010Q2

REPORT INFORMATION
  Report Type: 
  Country: None (occurrence: None)
  Receive Date: 20100623
  Receipt Date: 20100614
  Transmission Date: 20101027
  Serious: Yes (Death, Hospitalization)
  Sender: FDA-Public Use
  Company Number: FR-ROCHE-680648

PATIENT
  Sex: Male

DRUGS (3)
  1. MYCOPHENOLATE MOFETIL [Suspect]
     Dosage: THERAPY INTERRUPTED
     Route: 048
     Dates: start: 20070405, end: 20100308
  2. BELATACEPT [Suspect]
     Dosage: LESS INTENSIVE DOSING REGIMEN; THERAPY INTERRUPTED
     Route: 042
     Dates: start: 20070405, end: 20100308
  3. CORTANCYL [Suspect]
     Dosage: THERAPY INTERRUPTED
     Route: 048
     Dates: start: 20090408, end: 20100308

REACTIONS (3)
  - DEATH [None]
  - LUNG ADENOCARCINOMA [None]
  - PLEURAL EFFUSION [None]
